FAERS Safety Report 7811051-9 (Version None)
Quarter: 2011Q4

REPORT INFORMATION
  Report Type: 
  Country: None (occurrence: None)
  Receive Date: 20111013
  Receipt Date: 20111010
  Transmission Date: 20120403
  Serious: Yes (Congenital Anomaly)
  Sender: FDA-Public Use
  Company Number: FR-ROXANE LABORATORIES, INC.-2011-DE-05683GD

PATIENT
  Sex: Male

DRUGS (2)
  1. CODEINE SULFATE [Suspect]
     Indication: MATERNAL EXPOSURE DURING PREGNANCY
     Route: 064
  2. METHADONE HCL [Suspect]
     Indication: MATERNAL EXPOSURE DURING PREGNANCY
     Route: 064

REACTIONS (7)
  - MULTIPLE CONGENITAL ABNORMALITIES [None]
  - CONGENITAL GENITAL MALFORMATION MALE [None]
  - LIMB MALFORMATION [None]
  - DYSMORPHISM [None]
  - CONGENITAL CYSTIC KIDNEY DISEASE [None]
  - CONGENITAL MUSCULOSKELETAL ANOMALY [None]
  - SYNDACTYLY [None]
